FAERS Safety Report 7336715-5 (Version None)
Quarter: 2011Q1

REPORT INFORMATION
  Report Type: 
  Country: None (occurrence: None)
  Receive Date: 20110308
  Receipt Date: 20110301
  Transmission Date: 20110831
  Serious: No
  Sender: FDA-Public Use
  Company Number: US-BIOGENIDEC-2010BI019717

PATIENT
  Sex: Female

DRUGS (1)
  1. TYSABRI [Suspect]
     Indication: MULTIPLE SCLEROSIS
     Route: 042
     Dates: start: 20080205

REACTIONS (14)
  - DEPRESSED MOOD [None]
  - CONSTIPATION [None]
  - BALANCE DISORDER [None]
  - FALL [None]
  - DYSSTASIA [None]
  - SKELETAL INJURY [None]
  - CONTUSION [None]
  - FUNGAL INFECTION [None]
  - MEMORY IMPAIRMENT [None]
  - FEELING ABNORMAL [None]
  - HYPERHIDROSIS [None]
  - URINARY INCONTINENCE [None]
  - POOR QUALITY SLEEP [None]
  - GAIT DISTURBANCE [None]
